FAERS Safety Report 6125452-0 (Version None)
Quarter: 2009Q1

REPORT INFORMATION
  Report Type: 
  Country: None (occurrence: None)
  Receive Date: 20090320
  Receipt Date: 20090309
  Transmission Date: 20090719
  Serious: Yes (Hospitalization)
  Sender: FDA-Public Use
  Company Number: PHHY2008GB33764

PATIENT
  Sex: Male
  Weight: 54 kg

DRUGS (3)
  1. TASIGNA [Suspect]
     Indication: CHRONIC MYELOID LEUKAEMIA
     Dosage: 400 MG, BID
     Dates: start: 20080730
  2. ALLOPURINOL [Concomitant]
     Dosage: 300 MG/DAY
     Route: 048
  3. OMEPRAZOLE [Concomitant]
     Indication: GASTRITIS
     Dosage: 20 MG, UNK
     Route: 048

REACTIONS (2)
  - TUBERCULOSIS [None]
  - WEIGHT DECREASED [None]
